FAERS Safety Report 14555207 (Version 2)
Quarter: 2019Q1

REPORT INFORMATION
  Report Type: Spontaneous
  Country: US (occurrence: US)
  Receive Date: 20180220
  Receipt Date: 20190121
  Transmission Date: 20190417
  Serious: No
  Sender: FDA-Public Use
  Company Number: US-ACTELION-A-US2018-167668

PATIENT
  Age: 67 Year
  Sex: Female

DRUGS (1)
  1. TRACLEER [Suspect]
     Active Substance: BOSENTAN
     Indication: PULMONARY HYPERTENSION
     Dosage: 125 MG, BID
     Route: 048

REACTIONS (5)
  - Decreased activity [Unknown]
  - Dyspnoea [Unknown]
  - Product dose omission [Unknown]
  - Nausea [Unknown]
  - Product administration error [Unknown]
